FAERS Safety Report 5304289-6 (Version None)
Quarter: 2007Q2

REPORT INFORMATION
  Report Type: 
  Country: None (occurrence: None)
  Receive Date: 20070423
  Receipt Date: 20070412
  Transmission Date: 20071010
  Serious: Yes (Hospitalization)
  Sender: FDA-Public Use
  Company Number: PHBS2007CH06440

PATIENT
  Age: 16 Year
  Sex: Male

DRUGS (2)
  1. RITALIN [Suspect]
     Indication: HYPERSOMNIA-BULIMIA SYNDROME
     Dosage: 40 MG/DAY
     Route: 065
  2. RITALIN [Suspect]
     Dosage: 80 MG/DAY
     Route: 065

REACTIONS (6)
  - AGGRESSION [None]
  - DISORIENTATION [None]
  - HALLUCINATION [None]
  - INCORRECT DOSE ADMINISTERED [None]
  - SLEEP DISORDER [None]
  - TACHYCARDIA [None]
